FAERS Safety Report 12965656 (Version 1)
Quarter: 2016Q4

REPORT INFORMATION
  Report Type: Report from Study
  Country: GB (occurrence: GB)
  Receive Date: 20161122
  Receipt Date: 20161122
  Transmission Date: 20170207
  Serious: Yes (Other)
  Sender: FDA-Public Use
  Company Number: GB-GILEAD-2016-0244270

PATIENT
  Age: 68 Year
  Sex: Male

DRUGS (5)
  1. LERCANIDIPINE [Concomitant]
     Active Substance: LERCANIDIPINE
  2. NEVIRAPINE. [Concomitant]
     Active Substance: NEVIRAPINE
     Indication: HIV INFECTION
  3. ATORVASTATIN [Concomitant]
     Active Substance: ATORVASTATIN
  4. IRBESARTAN. [Concomitant]
     Active Substance: IRBESARTAN
  5. EMTRICITABINE/TENOFOVIR DISOPROXIL FUMARATE [Suspect]
     Active Substance: EMTRICITABINE\TENOFOVIR DISOPROXIL FUMARATE
     Indication: HIV INFECTION
     Dosage: UNK, QOD
     Route: 065

REACTIONS (2)
  - Chronic kidney disease [Unknown]
  - IgA nephropathy [Unknown]
